FAERS Safety Report 16849714 (Version 1)
Quarter: 2019Q3

REPORT INFORMATION
  Report Type: Spontaneous
  Country: DE (occurrence: DE)
  Receive Date: 20190925
  Receipt Date: 20190925
  Transmission Date: 20191005
  Serious: Yes (Other)
  Sender: FDA-Public Use
  Company Number: PHHY2019DE218829

PATIENT
  Age: 76 Year
  Sex: Female

DRUGS (1)
  1. BISOHEXAL [Suspect]
     Active Substance: BISOPROLOL FUMARATE
     Indication: CARDIAC PACEMAKER INSERTION
     Dosage: 0.5 DF, QD (1/2 * 2.5 MG)
     Route: 065
     Dates: start: 2017

REACTIONS (7)
  - Pallor [Unknown]
  - Hypotension [Unknown]
  - Dizziness [Unknown]
  - Heart rate increased [Unknown]
  - Eye haemorrhage [Unknown]
  - Scab [Unknown]
  - Hypoaesthesia [Unknown]
